FAERS Safety Report 10739099 (Version 2)
Quarter: 2015Q1

REPORT INFORMATION
  Report Type: Spontaneous
  Country: US (occurrence: US)
  Receive Date: 20150126
  Receipt Date: 20150220
  Transmission Date: 20150721
  Serious: Yes (Death)
  Sender: FDA-Public Use
  Company Number: US-ENDO PHARMACEUTICALS INC.-VALS20150003

PATIENT
  Age: 84 Year
  Sex: Male
  Weight: 75.82 kg

DRUGS (1)
  1. VALSTAR [Suspect]
     Active Substance: VALRUBICIN
     Indication: BLADDER CANCER STAGE 0, WITH CANCER IN SITU
     Route: 065
     Dates: start: 20141106, end: 20141113

REACTIONS (1)
  - Metastases to liver [Fatal]

NARRATIVE: CASE EVENT DATE: 201411
